FAERS Safety Report 14689732 (Version 1)
Quarter: 2018Q1

REPORT INFORMATION
  Report Type: Spontaneous
  Country: GB (occurrence: GB)
  Receive Date: 20180328
  Receipt Date: 20180328
  Transmission Date: 20180509
  Serious: Yes (Other)
  Sender: FDA-Public Use
  Company Number: GB-PFIZER INC-2018121374

PATIENT
  Age: 3 Decade
  Sex: Male

DRUGS (21)
  1. XANAX [Suspect]
     Active Substance: ALPRAZOLAM
     Dosage: 16 MG, UNK
     Dates: start: 20170928
  2. XANAX [Suspect]
     Active Substance: ALPRAZOLAM
     Dosage: 19 MG, DAILY
     Dates: start: 20170914
  3. XANAX [Suspect]
     Active Substance: ALPRAZOLAM
     Dosage: 11 MG, UNK
     Dates: start: 20171029
  4. XANAX [Suspect]
     Active Substance: ALPRAZOLAM
     Dosage: 4 MG, UNK
     Dates: start: 20171222
  5. XANAX [Suspect]
     Active Substance: ALPRAZOLAM
     Dosage: 3 MG, UNK
     Dates: start: 20171229
  6. XANAX [Suspect]
     Active Substance: ALPRAZOLAM
     Dosage: UNK
     Dates: start: 20171215
  7. XANAX [Suspect]
     Active Substance: ALPRAZOLAM
     Dosage: UNK
  8. XANAX [Suspect]
     Active Substance: ALPRAZOLAM
     Dosage: 13 MG, UNK
     Dates: start: 20171014
  9. XANAX [Suspect]
     Active Substance: ALPRAZOLAM
     Dosage: 6 MG, UNK
     Dates: start: 20171209
  10. XANAX [Suspect]
     Active Substance: ALPRAZOLAM
     Dosage: HALF OF A HALF 2-MILLIGRAM PILL
     Dates: start: 20180129
  11. XANAX [Suspect]
     Active Substance: ALPRAZOLAM
     Dosage: 0.5 MG, UNK
     Dates: end: 20170205
  12. CANNABIS [Concomitant]
     Active Substance: CANNABIS SATIVA SUBSP. INDICA TOP
     Dosage: UNK
  13. XANAX [Suspect]
     Active Substance: ALPRAZOLAM
     Dosage: 20 MG, DAILY
     Dates: start: 201709
  14. HEROIN [Concomitant]
     Active Substance: DIAMORPHINE
     Dosage: UNK
  15. XANAX [Suspect]
     Active Substance: ALPRAZOLAM
     Dosage: 10 MG, UNK
     Dates: start: 20171107
  16. XANAX [Suspect]
     Active Substance: ALPRAZOLAM
     Dosage: UNK
     Dates: start: 20171123
  17. XANAX [Suspect]
     Active Substance: ALPRAZOLAM
     Dosage: UNK
     Dates: start: 20171202
  18. XANAX [Suspect]
     Active Substance: ALPRAZOLAM
     Dosage: 1 MG, UNK
     Dates: start: 20180121
  19. KETAMINE [Concomitant]
     Active Substance: KETAMINE
     Dosage: UNK
  20. XANAX [Suspect]
     Active Substance: ALPRAZOLAM
     Dosage: 9 MG, UNK
     Dates: start: 20171115
  21. XANAX [Suspect]
     Active Substance: ALPRAZOLAM
     Dosage: UNK
     Dates: start: 20180107

REACTIONS (45)
  - Depression [Unknown]
  - Affect lability [Unknown]
  - Vomiting [Unknown]
  - Muscle spasms [Unknown]
  - Suicidal ideation [Unknown]
  - Tremor [Unknown]
  - Muscle twitching [Unknown]
  - Conversion disorder [Unknown]
  - Abdominal pain upper [Unknown]
  - Discomfort [Unknown]
  - Helplessness [Unknown]
  - Frustration tolerance decreased [Unknown]
  - Asthenia [Unknown]
  - Alcohol poisoning [Unknown]
  - Tachyphrenia [Unknown]
  - Anhedonia [Unknown]
  - Psychiatric symptom [Unknown]
  - Disturbance in attention [Unknown]
  - Crying [Unknown]
  - Intrusive thoughts [Unknown]
  - Fatigue [Unknown]
  - Insomnia [Unknown]
  - Restlessness [Unknown]
  - Depressed mood [Unknown]
  - Anxiety [Unknown]
  - Obsessive thoughts [Unknown]
  - Dyspnoea [Unknown]
  - Muscle tightness [Unknown]
  - Restless legs syndrome [Unknown]
  - Malaise [Unknown]
  - Decreased appetite [Unknown]
  - Loss of consciousness [Unknown]
  - Tension [Unknown]
  - Stress [Unknown]
  - Dizziness [Unknown]
  - Lethargy [Unknown]
  - Anger [Unknown]
  - Palpitations [Unknown]
  - Pain [Unknown]
  - Counterfeit product administered [Unknown]
  - Overdose [Unknown]
  - Dependence [Unknown]
  - Mania [Unknown]
  - Irritability [Unknown]
  - Feeling abnormal [Unknown]
